FAERS Safety Report 9933109 (Version 1)
Quarter: 2014Q1

REPORT INFORMATION
  Report Type: Spontaneous
  Country: DE (occurrence: DE)
  Receive Date: 20140228
  Receipt Date: 20140228
  Transmission Date: 20141002
  Serious: Yes (Congenital Anomaly, Other)
  Sender: FDA-Public Use
  Company Number: GXKR2014DE001053

PATIENT
  Sex: 0

DRUGS (5)
  1. PAROXETINE [Suspect]
     Indication: DEPRESSION
     Dosage: 20 [MG/D ]
     Route: 064
     Dates: start: 20120818, end: 20130524
  2. THYROXIN [Concomitant]
     Indication: HYPOTHYROIDISM
     Dosage: 100 [?G/D ]
     Route: 064
     Dates: start: 20120818, end: 20130524
  3. ESOMEPRAZOLE [Concomitant]
     Indication: GASTRITIS PROPHYLAXIS
     Dosage: 40 [MG/D ]
     Route: 064
     Dates: start: 20120818, end: 20130524
  4. FOLSAEURE [Concomitant]
     Indication: PROPHYLAXIS OF NEURAL TUBE DEFECT
     Dosage: 0.4 [MG/D ]
     Route: 064
     Dates: start: 20120920, end: 20130524
  5. GRIPPE IMPFSTOFF [Concomitant]
     Indication: IMMUNISATION
     Route: 064

REACTIONS (3)
  - Pulmonary valve stenosis congenital [Not Recovered/Not Resolved]
  - Feeding disorder neonatal [Recovered/Resolved]
  - Atrial septal defect [Recovering/Resolving]
